FAERS Safety Report 11719716 (Version 1)
Quarter: 2015Q4

REPORT INFORMATION
  Report Type: Other
  Country: US (occurrence: US)
  Receive Date: 20151110
  Receipt Date: 20151110
  Transmission Date: 20160304
  Serious: No
  Sender: FDA-Public Use
  Company Number: US-CTI_01777_2015

PATIENT
  Age: 6 Year
  Sex: Male

DRUGS (1)
  1. BETHKIS [Suspect]
     Active Substance: TOBRAMYCIN
     Indication: PSEUDOMONAS INFECTION
     Dosage: 300 MG IN 4 ML (FREQUENCY UNKNOWN)
     Route: 055
     Dates: start: 201507, end: 2015

REACTIONS (2)
  - Oropharyngeal pain [Recovered/Resolved]
  - Dysphonia [Recovered/Resolved]

NARRATIVE: CASE EVENT DATE: 2015
